FAERS Safety Report 17435571 (Version 3)
Quarter: 2020Q1

REPORT INFORMATION
  Report Type: Spontaneous
  Country: PL (occurrence: PL)
  Receive Date: 20200219
  Receipt Date: 20200304
  Transmission Date: 20200409
  Serious: Yes (Death, Other)
  Sender: FDA-Public Use
  Company Number: PL-MYLANLABS-2020M1017849

PATIENT
  Age: 55 Year
  Sex: Female
  Weight: 43 kg

DRUGS (6)
  1. FLUOROURACIL. [Suspect]
     Active Substance: FLUOROURACIL
     Indication: COLORECTAL CANCER
  2. CALCIUM FOLINATE [Suspect]
     Active Substance: LEUCOVORIN CALCIUM
     Indication: CHEMOTHERAPY
     Dosage: UNK
     Route: 065
     Dates: start: 201802
  3. CALCIUM FOLINATE [Suspect]
     Active Substance: LEUCOVORIN CALCIUM
     Indication: COLORECTAL CANCER
  4. FLUOROURACIL. [Suspect]
     Active Substance: FLUOROURACIL
     Indication: CHEMOTHERAPY
     Dosage: UNK
     Route: 065
     Dates: start: 201802
  5. OXALIPLATIN. [Suspect]
     Active Substance: OXALIPLATIN
     Indication: COLORECTAL CANCER
     Dosage: UNK, CYCLE
     Route: 041
     Dates: start: 201802
  6. PANITUMUMAB [Suspect]
     Active Substance: PANITUMUMAB
     Indication: COLORECTAL CANCER
     Dosage: UNK
     Route: 065
     Dates: start: 201802

REACTIONS (15)
  - Weight decreased [Unknown]
  - Neutropenia [Unknown]
  - Hypersensitivity [Unknown]
  - Quality of life decreased [Not Recovered/Not Resolved]
  - Skin atrophy [Unknown]
  - Skin toxicity [Unknown]
  - Diarrhoea [Unknown]
  - Neuropathy peripheral [Unknown]
  - Death [Fatal]
  - Electrolyte imbalance [Unknown]
  - Palmar-plantar erythrodysaesthesia syndrome [Unknown]
  - Short-bowel syndrome [Unknown]
  - Skin disorder [Unknown]
  - Polyneuropathy [Unknown]
  - Rash [Unknown]
